FAERS Safety Report 20530067 (Version 1)
Quarter: 2022Q1

REPORT INFORMATION
  Report Type: Spontaneous
  Country: IT (occurrence: IT)
  Receive Date: 20220301
  Receipt Date: 20220301
  Transmission Date: 20220423
  Serious: Yes (Hospitalization)
  Sender: FDA-Public Use
  Company Number: None

PATIENT
  Age: 73 Year
  Sex: Female
  Weight: 80 kg

DRUGS (1)
  1. DARZALEX [Suspect]
     Active Substance: DARATUMUMAB
     Indication: Plasma cell myeloma
     Dosage: ; CYCLICAL
     Route: 042
     Dates: start: 20220210, end: 20220210

REACTIONS (5)
  - Flushing [Recovered/Resolved]
  - Hypotension [Recovered/Resolved]
  - Chills [Recovered/Resolved]
  - Bronchospasm [Recovered/Resolved]
  - Cough [Recovered/Resolved]

NARRATIVE: CASE EVENT DATE: 20220210
